FAERS Safety Report 7221746-6 (Version None)
Quarter: 2011Q1

REPORT INFORMATION
  Report Type: 
  Country: None (occurrence: None)
  Receive Date: 20110112
  Receipt Date: 20110106
  Transmission Date: 20110831
  Serious: Yes (Death, Hospitalization)
  Sender: FDA-Public Use
  Company Number: US-JNJFOC-20110101892

PATIENT
  Age: 10 Year
  Sex: Male

DRUGS (10)
  1. LORAZEPAM [Suspect]
     Indication: POISONING DELIBERATE
     Route: 048
  2. VALPROIC ACID [Suspect]
     Indication: POISONING DELIBERATE
     Route: 048
  3. METHYLPHENIDATE [Suspect]
     Indication: POISONING DELIBERATE
     Route: 048
  4. LORATADINE [Suspect]
     Indication: POISONING DELIBERATE
     Route: 048
  5. CLONAZEPAM [Suspect]
     Indication: POISONING DELIBERATE
     Route: 048
  6. OMEPRAZOLE [Suspect]
     Indication: POISONING DELIBERATE
     Route: 048
  7. RISPERIDONE [Suspect]
     Indication: POISONING DELIBERATE
     Route: 048
  8. ALPRAZOLAM [Suspect]
     Indication: POISONING DELIBERATE
     Route: 048
  9. ATOMOXETINE HCL [Suspect]
     Indication: POISONING DELIBERATE
     Route: 048
  10. QUETIAPINE [Suspect]
     Indication: POISONING DELIBERATE
     Route: 048

REACTIONS (2)
  - TOXICITY TO VARIOUS AGENTS [None]
  - INTENTIONAL DRUG MISUSE [None]
